FAERS Safety Report 14605917 (Version 1)
Quarter: 2018Q1

REPORT INFORMATION
  Report Type: Spontaneous
  Country: DE (occurrence: DE)
  Receive Date: 20180306
  Receipt Date: 20180306
  Transmission Date: 20180509
  Serious: Yes (Other)
  Sender: FDA-Public Use
  Company Number: PHHY2017DE201513

PATIENT
  Sex: Male

DRUGS (4)
  1. OLANZAPIN [Suspect]
     Active Substance: OLANZAPINE
     Indication: PSYCHOTIC DISORDER
     Dosage: 10 MG, QD
     Route: 065
     Dates: start: 20151201
  2. TIAPRIDE [Suspect]
     Active Substance: TIAPRIDE
     Indication: HYPERKINESIA
     Dosage: 300 MG, QD
     Route: 065
     Dates: start: 20151201, end: 20171122
  3. XEPLION [Suspect]
     Active Substance: PALIPERIDONE PALMITATE
     Indication: PSYCHOTIC DISORDER
     Dosage: 150 MG, Q4W
     Route: 030
     Dates: start: 20151201, end: 20171116
  4. OLANZAPIN [Suspect]
     Active Substance: OLANZAPINE
     Dosage: 5 MG, QD
     Route: 065

REACTIONS (2)
  - Basophil count decreased [Unknown]
  - Thrombocytopenia [Unknown]
